FAERS Safety Report 5118894-3 (Version None)
Quarter: 2006Q4

REPORT INFORMATION
  Report Type: 
  Country: None (occurrence: None)
  Receive Date: 20061002
  Receipt Date: 20060929
  Transmission Date: 20070319
  Serious: Yes (Life-Threatening, Hospitalization)
  Sender: FDA-Public Use
  Company Number: ZA-ROXANE LABORATORIES, INC-2006-BP-11468RO

PATIENT
  Sex: Female

DRUGS (3)
  1. LITHIUM CARBONATE [Suspect]
     Indication: MANIA
     Dosage: 750 MG DAILY
     Route: 048
     Dates: start: 20050808, end: 20060906
  2. ARIPIPRAZOLE [Suspect]
     Indication: MANIA
     Dosage: 30 MG DAILY
     Route: 048
     Dates: start: 20051018, end: 20060906
  3. FLUNITRAZEPAM [Concomitant]
     Dates: start: 20060901

REACTIONS (7)
  - ARRHYTHMIA [None]
  - BRADYCARDIA [None]
  - CARDIAC FAILURE [None]
  - HYPOTENSION [None]
  - OVERDOSE [None]
  - RESPIRATORY FAILURE [None]
  - SLEEP APNOEA SYNDROME [None]
